FAERS Safety Report 7200580-7 (Version None)
Quarter: 2010Q4

REPORT INFORMATION
  Report Type: 
  Country: None (occurrence: None)
  Receive Date: 20101228
  Receipt Date: 20101223
  Transmission Date: 20110411
  Serious: Yes (Death, Hospitalization)
  Sender: FDA-Public Use
  Company Number: CH-PFIZER INC-CH-WYE-H12703309

PATIENT
  Age: 97 Year
  Sex: Female
  Weight: 45 kg

DRUGS (9)
  1. PANTOZOL [Suspect]
     Dosage: 40 MG, 1X/DAY
     Route: 048
  2. DOXIUM [Suspect]
     Dosage: 1000.0 MG, 1X/DAY
     Route: 048
     Dates: start: 20090116, end: 20090320
  3. NORVASC [Suspect]
     Indication: ESSENTIAL HYPERTENSION
     Dosage: 10 MG, 1X/DAY
     Route: 048
  4. TOREM [Suspect]
     Indication: MYOCARDIAL ISCHAEMIA
     Dosage: 75.0 MG, 1X/DAY
     Route: 048
  5. ACETYLSALICYLIC ACID [Suspect]
     Dosage: 1.0 DF, 1X/DAY
     Route: 048
  6. DAFALGAN [Suspect]
     Dosage: 500 MG, 2X/DAY
     Route: 048
  7. LEKOVIT CA [Concomitant]
     Route: 048
  8. TRANSIPEG [Concomitant]
     Route: 048
  9. BELOC ZOK [Concomitant]
     Route: 048

REACTIONS (4)
  - ANAEMIA [None]
  - FEMORAL HERNIA [None]
  - INFECTION [None]
  - LEUKOPENIA [None]
